FAERS Safety Report 8113677-4 (Version None)
Quarter: 2012Q1

REPORT INFORMATION
  Report Type: 
  Country: None (occurrence: None)
  Receive Date: 20120203
  Receipt Date: 20120202
  Transmission Date: 20120608
  Serious: Yes (Disabling)
  Sender: FDA-Public Use
  Company Number: FR-AMGEN-FRACT2011063234

PATIENT
  Age: 75 Year
  Sex: Male

DRUGS (11)
  1. IRBESARTAN [Concomitant]
     Indication: HYPERTENSION
     Dosage: 300 MG, ONE TIME DOSE
     Route: 048
  2. ISOPTIN [Concomitant]
     Indication: HYPERTENSION
     Dosage: 120 MG, ONE TIME DOSE
     Route: 048
  3. VITAMIN D [Concomitant]
     Indication: HYPOCALCAEMIA
     Dosage: 400 MG, QD
     Route: 048
  4. MOTILIUM [Concomitant]
     Indication: NAUSEA
     Dosage: UNK UNK, PRN
     Route: 048
  5. CALCIUM CARBONATE [Concomitant]
     Indication: HYPOCALCAEMIA
     Dosage: 500 MG, QD
     Route: 048
  6. ZOLADEX [Concomitant]
     Indication: PROSTATE CANCER
     Dosage: 8 MG, Q3MO
  7. TIOTROPIUM [Concomitant]
     Indication: CHRONIC OBSTRUCTIVE PULMONARY DISEASE
     Dosage: 18 MUG, QD
     Route: 048
  8. VOGALENE [Concomitant]
     Indication: NAUSEA
     Dosage: UNK UNK, PRN
     Route: 048
  9. SPASFON [Concomitant]
     Indication: ABDOMINAL PAIN
     Dosage: 80 MG, PRN
     Route: 048
  10. DENOSUMAB [Suspect]
     Indication: PROSTATE CANCER
     Dosage: UNK, QMO
     Route: 058
     Dates: start: 20080707
  11. DEBRIDAT [Concomitant]
     Indication: ABDOMINAL PAIN
     Dosage: 100 MG, ONE TIME DOSE
     Route: 048

REACTIONS (1)
  - OSTEONECROSIS OF JAW [None]
